FAERS Safety Report 18153314 (Version 2)
Quarter: 2020Q3

REPORT INFORMATION
  Report Type: Spontaneous
  Country: US (occurrence: US)
  Receive Date: 20200815
  Receipt Date: 20200825
  Transmission Date: 20201103
  Serious: No
  Sender: FDA-Public Use
  Company Number: US-ACTELION-A-NJ2020-208271

PATIENT
  Age: 12 Year
  Sex: Female

DRUGS (7)
  1. OPSUMIT [Suspect]
     Active Substance: MACITENTAN
     Indication: PULMONARY ARTERIAL HYPERTENSION
     Dosage: 10 MG, QD
     Route: 048
     Dates: start: 20200729, end: 20200812
  2. TADALAFIL. [Concomitant]
     Active Substance: TADALAFIL
     Dosage: 20 MG, OD
     Dates: start: 202002
  3. BUDESONIDE. [Concomitant]
     Active Substance: BUDESONIDE
     Dosage: 3 MG, TID
     Dates: start: 202001
  4. SPIRONOLACTONE. [Concomitant]
     Active Substance: SPIRONOLACTONE
     Dosage: 50 MG, OD
     Dates: start: 202001
  5. ALDACTONE [Concomitant]
     Active Substance: SPIRONOLACTONE
     Dosage: 50 MG, QD
  6. LASIX [Concomitant]
     Active Substance: FUROSEMIDE
     Dosage: 20 MG, TID
     Dates: start: 201912
  7. LISINOPRIL. [Concomitant]
     Active Substance: LISINOPRIL
     Dosage: 10 MG, OD
     Dates: start: 201602

REACTIONS (7)
  - Condition aggravated [Unknown]
  - Joint swelling [Unknown]
  - Protein-losing gastroenteropathy [Unknown]
  - Swelling [Recovering/Resolving]
  - Oedema [Recovering/Resolving]
  - Abdominal distension [Unknown]
  - Weight increased [Recovering/Resolving]

NARRATIVE: CASE EVENT DATE: 20200801
